FAERS Safety Report 16702182 (Version 1)
Quarter: 2019Q3

REPORT INFORMATION
  Report Type: Spontaneous
  Country: US (occurrence: US)
  Receive Date: 20190627
  Receipt Date: 20190627
  Transmission Date: 20191004
  Serious: Yes (Death, Hospitalization)
  Sender: FDA-Public Use
  Company Number: None

PATIENT
  Age: 56 Year
  Sex: Female
  Weight: 59.2 kg

DRUGS (1)
  1. COREG [Suspect]
     Active Substance: CARVEDILOL
     Dates: end: 20190512

REACTIONS (18)
  - Idiopathic intracranial hypertension [None]
  - Urinary tract infection [None]
  - Coma [None]
  - Back pain [None]
  - Fatigue [None]
  - Sinus tachycardia [None]
  - Mental status changes [None]
  - Aphasia [None]
  - Headache [None]
  - Hydrocephalus [None]
  - Hypertension [None]
  - Unresponsive to stimuli [None]
  - Nausea [None]
  - Musculoskeletal chest pain [None]
  - Brain oedema [None]
  - Vomiting [None]
  - Lethargy [None]
  - Mental impairment [None]

NARRATIVE: CASE EVENT DATE: 20190615
